FAERS Safety Report 9555497 (Version 1)
Quarter: 2013Q3

REPORT INFORMATION
  Report Type: Spontaneous
  Country: US (occurrence: None)
  Receive Date: 20130925
  Receipt Date: 20130925
  Transmission Date: 20140515
  Serious: Yes (Other)
  Sender: FDA-Public Use
  Company Number: None

PATIENT
  Age: 3 Month
  Sex: Male
  Weight: 2.5 kg

DRUGS (1)
  1. TEGADERM [Suspect]
     Indication: CATHETER MANAGEMENT
     Dates: start: 20130910, end: 20130913

REACTIONS (1)
  - Skin disorder [None]
